FAERS Safety Report 16010885 (Version 2)
Quarter: 2019Q1

REPORT INFORMATION
  Report Type: Spontaneous
  Country: CN (occurrence: CN)
  Receive Date: 20190227
  Receipt Date: 20190304
  Transmission Date: 20190418
  Serious: No
  Sender: FDA-Public Use
  Company Number: CN-ASTELLAS-2019US007515

PATIENT
  Age: 43 Year
  Sex: Male

DRUGS (1)
  1. AMBISOME [Suspect]
     Active Substance: AMPHOTERICIN B
     Indication: FUNGAL SKIN INFECTION
     Dosage: 0.5 MG/KG (TOTAL DOSAGE OF 2 G), ONCE DAILY
     Route: 042

REACTIONS (1)
  - Off label use [Recovered/Resolved]
